FAERS Safety Report 14320351 (Version 1)
Quarter: 2017Q4

REPORT INFORMATION
  Report Type: Not Available
  Country: US (occurrence: US)
  Receive Date: 20171222
  Receipt Date: 20171222
  Transmission Date: 20180321
  Serious: No
  Sender: FDA-Public Use
  Company Number: US-NEUROCRINE BIOSCIENCES INC.-2017NBI01315

PATIENT
  Age: 54 Year
  Sex: Female

DRUGS (2)
  1. INGREZZA [Suspect]
     Active Substance: VALBENAZINE
     Indication: TARDIVE DYSKINESIA
     Route: 048
  2. ANTIPSYCHOTICS [Concomitant]
     Active Substance: UNSPECIFIED INGREDIENT
     Indication: PSYCHOTIC DISORDER

REACTIONS (3)
  - Somnolence [Unknown]
  - Fatigue [Unknown]
  - Social avoidant behaviour [Unknown]

NARRATIVE: CASE EVENT DATE: 2017
